APPROVED DRUG PRODUCT: ATENOLOL AND CHLORTHALIDONE
Active Ingredient: ATENOLOL; CHLORTHALIDONE
Strength: 50MG;25MG
Dosage Form/Route: TABLET;ORAL
Application: A074404 | Product #001
Applicant: NOSTRUM LABORATORIES INC
Approved: May 14, 1998 | RLD: No | RS: No | Type: DISCN